FAERS Safety Report 20351538 (Version 1)
Quarter: 2022Q1

REPORT INFORMATION
  Report Type: Spontaneous
  Country: US (occurrence: None)
  Receive Date: 20220119
  Receipt Date: 20220119
  Transmission Date: 20220424
  Serious: No
  Sender: FDA-Public Use
  Company Number: None

PATIENT
  Sex: Male

DRUGS (1)
  1. TREMFYA [Suspect]
     Active Substance: GUSELKUMAB
     Indication: Psoriasis
     Dosage: 8MG EVERY 8 WEEKS  UNDER THE SKIN?
     Route: 058
     Dates: start: 20211020

REACTIONS (2)
  - Therapeutic product effect decreased [None]
  - Condition aggravated [None]
